FAERS Safety Report 24617180 (Version 1)
Quarter: 2024Q4

REPORT INFORMATION
  Report Type: Spontaneous
  Country: US (occurrence: US)
  Receive Date: 20241114
  Receipt Date: 20241114
  Transmission Date: 20250115
  Serious: No
  Sender: LUPIN
  Company Number: US-LUPIN PHARMACEUTICALS INC.-2024-10895

PATIENT

DRUGS (2)
  1. ALBUTEROL SULFATE [Suspect]
     Active Substance: ALBUTEROL SULFATE
     Indication: Pneumonia
     Dosage: UNK, PRN, 2 PUFFS EVERY 8 HOURS AS NEEDED
  2. ALBUTEROL SULFATE [Suspect]
     Active Substance: ALBUTEROL SULFATE
     Indication: Pulmonary pain

REACTIONS (4)
  - Drug dose omission by device [Unknown]
  - Device delivery system issue [Unknown]
  - Device deposit issue [Unknown]
  - No adverse event [Unknown]
